FAERS Safety Report 13435836 (Version 2)
Quarter: 2017Q2

REPORT INFORMATION
  Report Type: Spontaneous
  Country: GB (occurrence: GB)
  Receive Date: 20170413
  Receipt Date: 20170526
  Transmission Date: 20170830
  Serious: Yes (Other)
  Sender: FDA-Public Use
  Company Number: GB-JNJFOC-20170409156

PATIENT
  Sex: Male

DRUGS (1)
  1. HALDOL DECANOATE [Suspect]
     Active Substance: HALOPERIDOL DECANOATE
     Indication: PRODUCT USED FOR UNKNOWN INDICATION
     Dosage: FOR APPROXIMATELY LAST 20 YEARS
     Route: 030

REACTIONS (17)
  - Mobility decreased [Unknown]
  - Agitation [Unknown]
  - Restlessness [Unknown]
  - Nightmare [Unknown]
  - Dizziness [Unknown]
  - Vision blurred [Unknown]
  - Chest pain [Unknown]
  - Eye movement disorder [Unknown]
  - Tremor [Unknown]
  - Arrhythmia [Unknown]
  - Musculoskeletal stiffness [Unknown]
  - Dyspnoea [Unknown]
  - Major depression [Unknown]
  - Sluggishness [Unknown]
  - Insomnia [Unknown]
  - Erectile dysfunction [Unknown]
  - Epistaxis [Unknown]
